FAERS Safety Report 15446355 (Version 1)
Quarter: 2018Q4

REPORT INFORMATION
  Report Type: Report from Study
  Country: DE (occurrence: DE)
  Receive Date: 20180928
  Receipt Date: 20180928
  Transmission Date: 20190204
  Serious: Yes (Hospitalization)
  Sender: FDA-Public Use
  Company Number: DE-PFIZER INC-2017543722

PATIENT
  Age: 75 Year
  Sex: Female

DRUGS (16)
  1. ENBREL [Suspect]
     Active Substance: ETANERCEPT
     Indication: RHEUMATOID ARTHRITIS
     Dosage: 50 MG, EVERY 7 DAYS
  2. METHOTREXATE (METHOTREXATE SODIUM) [Suspect]
     Active Substance: METHOTREXATE SODIUM
     Dosage: 20 MG, WEEKLY
  3. HYDROXYCHLOROQUINE/CHLOROQUINE [Suspect]
     Active Substance: CHLOROQUINE\HYDROXYCHLOROQUINE
     Dosage: 400 MG, DAILY
  4. AZULFIDINE [Suspect]
     Active Substance: SULFASALAZINE
     Dosage: 2000 MG, DAILY
  5. PREDNISOLONE. [Concomitant]
     Active Substance: PREDNISOLONE
     Dosage: 5 MG, DAILY
     Route: 048
  6. DORZOCOMP VISION [Concomitant]
     Active Substance: DORZOLAMIDE HYDROCHLORIDE\TIMOLOL MALEATE
     Dosage: UNK
  7. RUBIEFOL [Concomitant]
     Dosage: UNK
  8. PANTOPRAZOLE [Concomitant]
     Active Substance: PANTOPRAZOLE
     Dosage: UNK
  9. ATORVASTATIN CALCIUM. [Concomitant]
     Active Substance: ATORVASTATIN CALCIUM
     Dosage: UNK
  10. AMITRIPTYLIN [Concomitant]
     Active Substance: AMITRIPTYLINE
  11. PREGABALIN. [Concomitant]
     Active Substance: PREGABALIN
  12. QUENSYL [Concomitant]
     Active Substance: HYDROXYCHLOROQUINE
     Dosage: UNK
  13. DEKRISTOL [Concomitant]
     Active Substance: CHOLECALCIFEROL
     Dosage: UNK
  14. L-THYROXINE [LEVOTHYROXINE SODIUM] [Concomitant]
     Dosage: UNK
  15. CELECOXIB. [Concomitant]
     Active Substance: CELECOXIB
     Dosage: UNK
  16. COAPROVEL [Concomitant]
     Active Substance: HYDROCHLOROTHIAZIDE\IRBESARTAN
     Dosage: UNK

REACTIONS (2)
  - Herpes zoster [Recovered/Resolved]
  - Ophthalmic herpes zoster [Recovered/Resolved]

NARRATIVE: CASE EVENT DATE: 20170724
